FAERS Safety Report 18119339 (Version 7)
Quarter: 2020Q4

REPORT INFORMATION
  Report Type: Report from Study
  Country: US (occurrence: US)
  Receive Date: 20200806
  Receipt Date: 20201217
  Transmission Date: 20210113
  Serious: No
  Sender: FDA-Public Use
  Company Number: NVSC2020US215633

PATIENT
  Age: 63 Year
  Sex: Female

DRUGS (3)
  1. COSENTYX [Suspect]
     Active Substance: SECUKINUMAB
     Dosage: 300 MG, QW
     Route: 058
     Dates: start: 202006
  2. COSENTYX [Suspect]
     Active Substance: SECUKINUMAB
     Dosage: 300 MG, UNKNOWN (WEEKS 0, 1, 2, 3 AND 4  THEN ONCE EVERY 4 WEEKS THEREAFTER)
     Route: 058
  3. COSENTYX [Suspect]
     Active Substance: SECUKINUMAB
     Indication: PSORIASIS
     Dosage: 300 MG, QW
     Route: 058

REACTIONS (2)
  - Weight increased [Unknown]
  - Injection site mass [Recovered/Resolved]

NARRATIVE: CASE EVENT DATE: 202007
